FAERS Safety Report 9132510 (Version 6)
Quarter: 2013Q4

REPORT INFORMATION
  Report Type: Spontaneous
  Country: GB (occurrence: GB)
  Receive Date: 20130301
  Receipt Date: 20131114
  Transmission Date: 20140711
  Serious: Yes (Other)
  Sender: FDA-Public Use
  Company Number: GB-GLAXOSMITHKLINE-B0869996A

PATIENT
  Sex: 0

DRUGS (1)
  1. NIQUITIN [Suspect]
     Indication: PRODUCT USED FOR UNKNOWN INDICATION
     Route: 065

REACTIONS (5)
  - Coronary artery bypass [Unknown]
  - Back injury [Unknown]
  - Sports injury [Unknown]
  - Obsessive thoughts [Unknown]
  - Ill-defined disorder [Unknown]
